FAERS Safety Report 18438486 (Version 1)
Quarter: 2020Q4

REPORT INFORMATION
  Report Type: Spontaneous
  Country: US (occurrence: US)
  Receive Date: 20201028
  Receipt Date: 20201028
  Transmission Date: 20210114
  Serious: No
  Sender: FDA-Public Use
  Company Number: US-JNJFOC-A-NJ2020-204344

PATIENT
  Age: 41 Year
  Sex: Female
  Weight: 124.85 kg

DRUGS (7)
  1. ADEMPAS [Suspect]
     Active Substance: RIOCIGUAT
     Indication: PRODUCT USED FOR UNKNOWN INDICATION
     Route: 065
  2. ORENITRAM [Suspect]
     Active Substance: TREPROSTINIL
     Dosage: UNK, TID
     Route: 065
  3. ORENITRAM [Suspect]
     Active Substance: TREPROSTINIL
     Dosage: UNK, BID
     Route: 065
  4. OPSUMIT [Suspect]
     Active Substance: MACITENTAN
     Indication: PULMONARY ARTERIAL HYPERTENSION
     Dosage: 10 MG, QD
     Route: 048
  5. DILTIAZEM. [Concomitant]
     Active Substance: DILTIAZEM
  6. OPSUMIT [Suspect]
     Active Substance: MACITENTAN
     Dosage: 10 MG, QD
     Route: 048
  7. ORENITRAM [Suspect]
     Active Substance: TREPROSTINIL
     Indication: PRODUCT USED FOR UNKNOWN INDICATION
     Dosage: 1 MG
     Route: 065

REACTIONS (24)
  - Flushing [Not Recovered/Not Resolved]
  - Headache [Not Recovered/Not Resolved]
  - Pain in jaw [Unknown]
  - Non-cardiac chest pain [Unknown]
  - Sinus disorder [Unknown]
  - Cold sweat [Not Recovered/Not Resolved]
  - Weight increased [Unknown]
  - Oedema peripheral [Unknown]
  - Nasal dryness [Unknown]
  - Constipation [Unknown]
  - Herpes zoster [Unknown]
  - Nausea [Unknown]
  - Nausea [Not Recovered/Not Resolved]
  - Seasonal allergy [Unknown]
  - Back pain [Unknown]
  - Sinusitis [Unknown]
  - Sinus headache [Unknown]
  - Bedridden [Unknown]
  - Dyspepsia [Unknown]
  - Fibromyalgia [Unknown]
  - Pain in extremity [Unknown]
  - Abdominal pain upper [Not Recovered/Not Resolved]
  - Unevaluable event [Unknown]
  - Nasal congestion [Unknown]
